FAERS Safety Report 8564414-0 (Version None)
Quarter: 2012Q3

REPORT INFORMATION
  Report Type: 
  Country: None (occurrence: None)
  Receive Date: 20120803
  Receipt Date: 20120725
  Transmission Date: 20120928
  Serious: Yes (Other)
  Sender: FDA-Public Use
  Company Number: BR-JNJFOC-20120713910

PATIENT
  Age: 7 Year
  Sex: Male

DRUGS (3)
  1. NORMAL SALINE SOLUTION [Concomitant]
     Indication: POSTOPERATIVE CARE
     Route: 065
  2. ACETAMINOPHEN W/ CODEINE [Suspect]
     Indication: PROCEDURAL PAIN
     Route: 048
     Dates: start: 20120701, end: 20120701
  3. DIPYRONE TAB [Suspect]
     Indication: PROCEDURAL PAIN
     Dosage: NOVALGINA
     Route: 065
     Dates: start: 20120701

REACTIONS (2)
  - WRONG DRUG ADMINISTERED [None]
  - HYPOTHERMIA [None]
